FAERS Safety Report 21007585 (Version 1)
Quarter: 2022Q3

REPORT INFORMATION
  Report Type: Spontaneous
  Country: PT (occurrence: PT)
  Receive Date: 20220626
  Receipt Date: 20220626
  Transmission Date: 20221026
  Serious: Yes (Other)
  Sender: FDA-Public Use
  Company Number: PT-NOVARTISPH-NVSC2022PT144640

PATIENT
  Age: 43 Year
  Sex: Female

DRUGS (5)
  1. RIBOCICLIB [Suspect]
     Active Substance: RIBOCICLIB
     Indication: Metastatic neoplasm
     Dosage: 600 MG ((21DAYS/ 7DAYS BREAK)
     Route: 065
     Dates: start: 20210130, end: 20220603
  2. RIBOCICLIB [Suspect]
     Active Substance: RIBOCICLIB
     Dosage: 400 MG
     Route: 065
  3. FULVESTRANT [Concomitant]
     Active Substance: FULVESTRANT
     Indication: Product used for unknown indication
     Dosage: 500 MG, Q4W
     Route: 065
     Dates: start: 20210130, end: 20220603
  4. DENOSUMAB [Concomitant]
     Active Substance: DENOSUMAB
     Indication: Product used for unknown indication
     Dosage: 120 MG, Q4W
     Route: 065
     Dates: start: 20220221, end: 20220603
  5. GOSERELIN [Concomitant]
     Active Substance: GOSERELIN
     Indication: Product used for unknown indication
     Dosage: 3.6 MG, Q4W (EVERY 28 DAYS)
     Route: 065
     Dates: start: 20220221, end: 20220603

REACTIONS (3)
  - Neutropenia [Unknown]
  - Tenosynovitis [Unknown]
  - Product use in unapproved indication [Unknown]
